FAERS Safety Report 8502820-0 (Version None)
Quarter: 2012Q3

REPORT INFORMATION
  Report Type: 
  Country: None (occurrence: None)
  Receive Date: 20120711
  Receipt Date: 20120702
  Transmission Date: 20120928
  Serious: Yes (Hospitalization)
  Sender: FDA-Public Use
  Company Number: FR-PFIZER INC-2012163927

PATIENT
  Age: 72 Year
  Sex: Female

DRUGS (2)
  1. CORDARONE [Suspect]
     Indication: PRODUCT USED FOR UNKNOWN INDICATION
     Dosage: 1 UNIT ONCE DAILY
     Route: 048
     Dates: start: 20091201
  2. NOVOLOG MIX 70/30 [Concomitant]
     Dosage: UNK
     Dates: start: 20040101

REACTIONS (2)
  - HYPOGLYCAEMIA [None]
  - HYPOTHYROIDISM [None]
